FAERS Safety Report 5411586-2 (Version None)
Quarter: 2007Q3

REPORT INFORMATION
  Report Type: 
  Country: None (occurrence: None)
  Receive Date: 20070810
  Receipt Date: 20070803
  Transmission Date: 20080115
  Serious: Yes (Hospitalization)
  Sender: FDA-Public Use
  Company Number: FR-PFIZER INC-2007064928

PATIENT
  Sex: Male

DRUGS (1)
  1. QUINAPRIL HYDROCHLORIDE AND HYDROCHLOROTHIAZDE [Suspect]

REACTIONS (2)
  - LUNG DISORDER [None]
  - PERICARDITIS [None]
